FAERS Safety Report 5141426-0 (Version None)
Quarter: 2006Q4

REPORT INFORMATION
  Report Type: 
  Country: None (occurrence: None)
  Receive Date: 20061101
  Receipt Date: 20061020
  Transmission Date: 20070319
  Serious: Yes (Hospitalization)
  Sender: FDA-Public Use
  Company Number: PHFR2006GB03138

PATIENT
  Age: 23 Year
  Sex: Female

DRUGS (3)
  1. OLANZAPINE [Suspect]
     Dosage: UNK, UNK
     Route: 065
     Dates: start: 20061019
  2. AMISULPRIDE [Suspect]
     Dosage: 2.2G
     Route: 065
     Dates: start: 20061019
  3. CLOZARIL [Suspect]
     Indication: OVERDOSE
     Dosage: MAX. 9X25MG, 16X100MG MAXIMUM
     Route: 048
     Dates: start: 20061019

REACTIONS (1)
  - OVERDOSE [None]
